FAERS Safety Report 8999402 (Version 2)
Quarter: 2013Q1

REPORT INFORMATION
  Report Type: Spontaneous
  Country: FR (occurrence: FR)
  Receive Date: 20130103
  Receipt Date: 20130204
  Transmission Date: 20140127
  Serious: Yes (Other)
  Sender: FDA-Public Use
  Company Number: FR-ELI_LILLY_AND_COMPANY-FR201212000134

PATIENT
  Sex: Female

DRUGS (3)
  1. OPTRUMA [Suspect]
     Indication: MENOPAUSE
     Dosage: 60 MG, UNK
     Route: 048
     Dates: start: 2004, end: 20121126
  2. CLIMASTON [Concomitant]
     Indication: MENOPAUSE
     Dosage: UNK
     Dates: start: 2004
  3. OROCAL [Concomitant]

REACTIONS (4)
  - Osteonecrosis [Unknown]
  - Drug interaction [Unknown]
  - Migraine [Unknown]
  - Body height decreased [Unknown]
